FAERS Safety Report 12461090 (Version 1)
Quarter: 2016Q2

REPORT INFORMATION
  Report Type: Spontaneous
  Country: US (occurrence: US)
  Receive Date: 20160613
  Receipt Date: 20160613
  Transmission Date: 20160815
  Serious: No
  Sender: FDA-Public Use
  Company Number: US-US WORLDMEDS, LLC-USW201509-000264

PATIENT
  Age: 91 Year
  Sex: Female
  Weight: 53.52 kg

DRUGS (3)
  1. APOKYN [Suspect]
     Active Substance: APOMORPHINE HYDROCHLORIDE
     Indication: PARKINSON^S DISEASE
     Route: 058
     Dates: start: 20150924, end: 20150924
  2. COLACE [Concomitant]
     Active Substance: DOCUSATE SODIUM
  3. MIRALAX [Concomitant]
     Active Substance: POLYETHYLENE GLYCOL 3350

REACTIONS (6)
  - Pallor [Recovering/Resolving]
  - Hyperhidrosis [Unknown]
  - Hypotension [Recovered/Resolved]
  - Yawning [Unknown]
  - Malaise [Recovered/Resolved]
  - Fatigue [Unknown]

NARRATIVE: CASE EVENT DATE: 20150924
